FAERS Safety Report 22653434 (Version 1)
Quarter: 2023Q2

REPORT INFORMATION
  Report Type: Spontaneous
  Country: JP (occurrence: JP)
  Receive Date: 20230629
  Receipt Date: 20230629
  Transmission Date: 20230722
  Serious: Yes (Hospitalization)
  Sender: FDA-Public Use
  Company Number: JP-STRIDES ARCOLAB LIMITED-2023SP010239

PATIENT
  Age: 55 Year
  Sex: Female

DRUGS (16)
  1. PREDNISOLONE [Suspect]
     Active Substance: PREDNISOLONE
     Indication: Diffuse large B-cell lymphoma
     Dosage: 100 MILLIGRAM, CYCLICAL (TWO CYCLES OF R-CHOP)
     Route: 065
  2. PREDNISOLONE [Suspect]
     Active Substance: PREDNISOLONE
     Dosage: 10 MILLIGRAM
     Route: 037
  3. PREDNISOLONE [Suspect]
     Active Substance: PREDNISOLONE
     Dosage: 60 MILLIGRAM/SQ. METER, CYCLICAL (FOUR CYCLES OF R-EPOCH; 5 DAYS)
     Route: 065
  4. DOXORUBICIN [Suspect]
     Active Substance: DOXORUBICIN
     Indication: Diffuse large B-cell lymphoma
     Dosage: 50 MILLIGRAM/SQ. METER, CYCLICAL (TWO CYCLES OF R-CHOP)
     Route: 065
  5. DOXORUBICIN [Suspect]
     Active Substance: DOXORUBICIN
     Dosage: 10 MILLIGRAM/SQ. METER, CYCLICAL (4 CYCLES OF R-EPOCH;4 DAYS)
     Route: 065
  6. ETOPOSIDE [Suspect]
     Active Substance: ETOPOSIDE
     Indication: Diffuse large B-cell lymphoma
     Dosage: 50 MILLIGRAM/SQ. METER, CYCLICAL (FOUR CYCLES OF R-EPOCH)
     Route: 065
  7. METHYLPREDNISOLONE [Suspect]
     Active Substance: METHYLPREDNISOLONE
     Indication: Diffuse large B-cell lymphoma
     Dosage: 80 MILLIGRAM, CYCLICAL (TWO CYCLES OF R-CHOP)
     Route: 065
  8. VINCRISTINE [Suspect]
     Active Substance: VINCRISTINE
     Indication: Diffuse large B-cell lymphoma
     Dosage: 2 MILLIGRAM, CYCLICAL (TWO CYCLES OF R-CHOP)
     Route: 065
  9. VINCRISTINE [Suspect]
     Active Substance: VINCRISTINE
     Dosage: 0.4 MILLIGRAM/SQ. METER, CYCLICAL
     Route: 065
  10. VINCRISTINE [Suspect]
     Active Substance: VINCRISTINE
     Dosage: UNK, CYCLICAL (HALF OF STANDARD DOSE AT 2ND COURSE;STOPPED AT 4TH COURSE)
     Route: 065
  11. CYCLOPHOSPHAMIDE [Suspect]
     Active Substance: CYCLOPHOSPHAMIDE
     Indication: Diffuse large B-cell lymphoma
     Dosage: 750 MILLIGRAM/SQ. METER, CYCLICAL (TWO CYCLES OF R-CHOP)
     Route: 065
  12. CYCLOPHOSPHAMIDE [Suspect]
     Active Substance: CYCLOPHOSPHAMIDE
     Dosage: 750 MILLIGRAM/SQ. METER, CYCLICAL (PER DAY) (FOUR CYCLES OF R-EPOCH)
     Route: 065
  13. RITUXIMAB [Suspect]
     Active Substance: RITUXIMAB
     Indication: Diffuse large B-cell lymphoma
     Dosage: 375 MILLIGRAM/SQ. METER, CYCLICAL (TWO CYCLES OF R-CHOP THERAPY)
     Route: 065
  14. RITUXIMAB [Suspect]
     Active Substance: RITUXIMAB
     Dosage: 375 MILLIGRAM/SQ. METER, CYCLICAL (FOUR CYCLES OF R-EPOCH )
     Route: 065
  15. METHOTREXATE [Concomitant]
     Active Substance: METHOTREXATE
     Indication: Diffuse large B-cell lymphoma
     Dosage: 15 MILLIGRAM
     Route: 037
  16. CYTARABINE [Concomitant]
     Active Substance: CYTARABINE
     Indication: Diffuse large B-cell lymphoma
     Dosage: 40 MILLIGRAM
     Route: 037

REACTIONS (2)
  - Cardiotoxicity [Not Recovered/Not Resolved]
  - Off label use [Unknown]
